FAERS Safety Report 6885962-5 (Version None)
Quarter: 2010Q3

REPORT INFORMATION
  Report Type: 
  Country: None (occurrence: None)
  Receive Date: 20100729
  Receipt Date: 20080919
  Transmission Date: 20110219
  Serious: No
  Sender: FDA-Public Use
  Company Number: US-PFIZER INC-2008066820

PATIENT
  Sex: Female
  Weight: 55.9 kg

DRUGS (16)
  1. CELEBREX [Suspect]
     Indication: ARTHRITIS
     Route: 048
  2. ACETAMINOPHEN [Suspect]
     Indication: PAIN
  3. ACIPHEX [Concomitant]
  4. ADVAIR DISKUS 100/50 [Concomitant]
  5. ALLEGRA [Concomitant]
  6. COREG [Concomitant]
  7. LANOXIN [Concomitant]
  8. PREDNISONE [Concomitant]
  9. ISOSORBIDE [Concomitant]
  10. FOSAMAX [Concomitant]
  11. FUROSEMIDE [Concomitant]
  12. CALCIUM [Concomitant]
  13. MULTI-VITAMINS [Concomitant]
  14. IRON [Concomitant]
  15. ACETYLSALICYLIC ACID SRT [Concomitant]
  16. DUONEB [Concomitant]

REACTIONS (3)
  - DRY EYE [None]
  - EYE INFECTION [None]
  - URINE OUTPUT DECREASED [None]
